FAERS Safety Report 24974343 (Version 1)
Quarter: 2025Q1

REPORT INFORMATION
  Report Type: Spontaneous
  Country: FR (occurrence: FR)
  Receive Date: 20250217
  Receipt Date: 20250217
  Transmission Date: 20250409
  Serious: Yes (Disabling)
  Sender: SANOFI AVENTIS
  Company Number: None

PATIENT
  Age: 62 Year
  Sex: Male
  Weight: 105 kg

DRUGS (2)
  1. IRBESARTAN [Suspect]
     Active Substance: IRBESARTAN
  2. ASTRAZENECA COVID-19 VACCINE [Suspect]
     Active Substance: AZD-1222
     Indication: COVID-19 immunisation
     Route: 030
     Dates: start: 20210309, end: 20210527

REACTIONS (5)
  - Arthralgia [Not Recovered/Not Resolved]
  - Fluid retention [Not Recovered/Not Resolved]
  - Weight increased [Not Recovered/Not Resolved]
  - Dyspnoea [Not Recovered/Not Resolved]
  - Muscle spasms [Not Recovered/Not Resolved]

NARRATIVE: CASE EVENT DATE: 20210301
